FAERS Safety Report 8770939 (Version 1)
Quarter: 2012Q4

REPORT INFORMATION
  Report Type: 
  Country: US (occurrence: US)
  Receive Date: 20120906
  Receipt Date: 20120906
  Transmission Date: 20130627
  Serious: Yes (Hospitalization)
  Sender: FDA-Public Use
  Company Number: US-BAYER-2012-091098

PATIENT
  Age: 42 Year
  Sex: Female
  Weight: 130 kg

DRUGS (10)
  1. YASMIN [Suspect]
  2. DOXEPIN [Concomitant]
     Dosage: 50 mg, 1-2 Cap HS (hours of sleep)
     Route: 048
     Dates: start: 20020417, end: 20020608
  3. METOCLOPRAMIDE [Concomitant]
     Dosage: 10mg/1 Tab
     Route: 048
     Dates: start: 20020707
  4. CEPHALEXIN [Concomitant]
     Dosage: 250mg/1 cap, QID
     Route: 048
     Dates: start: 20020707
  5. HYDROCODONE/ACETAMINOPHEN [Concomitant]
     Dosage: 5/1-2 Tab Q6hr
     Route: 048
     Dates: start: 20020707
  6. DOCUSATE SODIUM [Concomitant]
     Dosage: 100mg/1 cap, BID
     Route: 048
     Dates: start: 20020710
  7. CIPROFLOXACIN [Concomitant]
     Dosage: 500mg/1 tab, BID
     Route: 048
     Dates: start: 20020710
  8. LEVLEN [Concomitant]
  9. MORPHINE [Concomitant]
     Indication: PAIN
  10. PHENERGAN [Concomitant]
     Indication: NAUSEA

REACTIONS (2)
  - Pulmonary embolism [None]
  - Deep vein thrombosis [None]
